FAERS Safety Report 17125060 (Version 1)
Quarter: 2019Q4

REPORT INFORMATION
  Report Type: Report from Study
  Country: US (occurrence: US)
  Receive Date: 20191206
  Receipt Date: 20191206
  Transmission Date: 20200122
  Serious: Yes (Death, Hospitalization)
  Sender: FDA-Public Use
  Company Number: US-ACTELION-A-US2019-198725

PATIENT
  Age: 3 Month
  Sex: Female

DRUGS (1)
  1. BOSENTAN TABLET 32 MG PED US [Suspect]
     Active Substance: BOSENTAN
     Indication: PULMONARY ARTERIAL HYPERTENSION
     Dosage: 32 MG, BID
     Route: 048
     Dates: start: 20191025, end: 20191101

REACTIONS (5)
  - Withdrawal of life support [Fatal]
  - Chronic respiratory disease [Unknown]
  - Oxygen saturation decreased [Unknown]
  - Lung hyperinflation [Unknown]
  - Pneumothorax [Unknown]

NARRATIVE: CASE EVENT DATE: 201910
